FAERS Safety Report 8159690-2 (Version None)
Quarter: 2012Q1

REPORT INFORMATION
  Report Type: 
  Country: None (occurrence: None)
  Receive Date: 20120223
  Receipt Date: 20120217
  Transmission Date: 20120608
  Serious: Yes (Hospitalization, Other)
  Sender: FDA-Public Use
  Company Number: US-BAYER-2011-091160

PATIENT
  Sex: Female
  Weight: 125 kg

DRUGS (2)
  1. YASMIN [Suspect]
     Indication: PREMENSTRUAL SYNDROME
     Dosage: UNK
     Dates: start: 20070501, end: 20070701
  2. YASMIN [Suspect]
     Dosage: UNK
     Dates: start: 20061201, end: 20090901

REACTIONS (10)
  - PAIN [None]
  - ANHEDONIA [None]
  - ANXIETY [None]
  - POST PROCEDURAL SEPSIS [None]
  - CHOLECYSTECTOMY [None]
  - GENERAL PHYSICAL HEALTH DETERIORATION [None]
  - PREGNANCY [None]
  - EMOTIONAL DISTRESS [None]
  - GALLBLADDER DISORDER [None]
  - INJURY [None]
